FAERS Safety Report 6032755-7 (Version None)
Quarter: 2008Q4

REPORT INFORMATION
  Report Type: 
  Country: None (occurrence: None)
  Receive Date: 20081224
  Receipt Date: 20080927
  Transmission Date: 20090506
  Serious: No
  Sender: FDA-Public Use
  Company Number: 2008PV036801

PATIENT
  Age: 72 Year
  Sex: Male
  Weight: 104.3273 kg

DRUGS (6)
  1. SYMLIN [Suspect]
     Indication: TYPE 2 DIABETES MELLITUS
     Dosage: 30 MCG; SC; 15 MCG; SC; 90 MCG; SC
     Route: 058
     Dates: start: 20080924, end: 20080926
  2. SYMLIN [Suspect]
     Indication: TYPE 2 DIABETES MELLITUS
     Dosage: 30 MCG; SC; 15 MCG; SC; 90 MCG; SC
     Route: 058
     Dates: start: 20080927, end: 20080930
  3. SYMLIN [Suspect]
     Indication: TYPE 2 DIABETES MELLITUS
     Dosage: 30 MCG; SC; 15 MCG; SC; 90 MCG; SC
     Route: 058
     Dates: start: 20081001
  4. HUMALOG [Concomitant]
  5. LANTUS [Concomitant]
  6. BOTOX [Concomitant]

REACTIONS (4)
  - BLOOD GLUCOSE INCREASED [None]
  - INCORRECT DOSE ADMINISTERED [None]
  - NAUSEA [None]
  - WRONG DRUG ADMINISTERED [None]
